FAERS Safety Report 17729178 (Version 2)
Quarter: 2020Q4

REPORT INFORMATION
  Report Type: Spontaneous
  Country: US (occurrence: US)
  Receive Date: 20200430
  Receipt Date: 20201126
  Transmission Date: 20210113
  Serious: Yes (Death, Hospitalization, Other)
  Sender: FDA-Public Use
  Company Number: US-ASTRAZENECA-2020SE54610

PATIENT
  Age: 24261 Day
  Sex: Female
  Weight: 96.6 kg

DRUGS (81)
  1. FUROSEMIDE. [Concomitant]
     Active Substance: FUROSEMIDE
     Indication: CARDIAC DISORDER
     Dates: start: 2005, end: 2014
  2. DIOVAN [Concomitant]
     Active Substance: VALSARTAN
     Indication: BLOOD PRESSURE MEASUREMENT
     Dates: start: 2006, end: 2008
  3. PEPTO-BISMOL [Concomitant]
     Active Substance: BISMUTH SUBSALICYLATE
     Dates: start: 1952
  4. DULOXETINE. [Concomitant]
     Active Substance: DULOXETINE
  5. CLONIDINE. [Concomitant]
     Active Substance: CLONIDINE
  6. DOXYCYCLINE. [Concomitant]
     Active Substance: DOXYCYCLINE
  7. SALSALATE. [Concomitant]
     Active Substance: SALSALATE
  8. PREVACID 24 HR [Suspect]
     Active Substance: LANSOPRAZOLE
     Indication: GASTROOESOPHAGEAL REFLUX DISEASE
     Route: 065
     Dates: start: 20091231
  9. PROTONIX [Suspect]
     Active Substance: PANTOPRAZOLE SODIUM
     Indication: GASTROOESOPHAGEAL REFLUX DISEASE
     Dosage: GENERIC
     Route: 065
     Dates: start: 20141017
  10. AMLODIPINE BESYLATE. [Concomitant]
     Active Substance: AMLODIPINE BESYLATE
  11. FLULAVAL [Concomitant]
  12. FOLIC ACID. [Concomitant]
     Active Substance: FOLIC ACID
  13. VITAMIN D [Concomitant]
     Active Substance: VITAMIN D NOS
  14. BIOTIN [Concomitant]
     Active Substance: BIOTIN
  15. CODEINE [Concomitant]
     Active Substance: CODEINE
  16. PREVACID [Suspect]
     Active Substance: LANSOPRAZOLE
     Indication: GASTROOESOPHAGEAL REFLUX DISEASE
     Route: 065
     Dates: start: 20070327
  17. PLAVIX [Concomitant]
     Active Substance: CLOPIDOGREL BISULFATE
     Indication: BLOOD VISCOSITY ABNORMAL
     Dates: start: 2007, end: 2011
  18. ROLAIDS [Concomitant]
     Active Substance: CALCIUM CARBONATE\MAGNESIUM HYDROXIDE
     Dates: start: 1952
  19. ADVAIR DISKUS [Concomitant]
     Active Substance: FLUTICASONE PROPIONATE\SALMETEROL XINAFOATE
  20. ASPIRIN. [Concomitant]
     Active Substance: ASPIRIN
  21. SULFA [Concomitant]
     Active Substance: UNSPECIFIED INGREDIENT
  22. GLUCOSE [Concomitant]
     Active Substance: DEXTROSE
  23. DILTIAZEM. [Concomitant]
     Active Substance: DILTIAZEM
  24. POTASSIUM CHLORIDE. [Concomitant]
     Active Substance: POTASSIUM CHLORIDE
  25. FERRITIN [Concomitant]
     Active Substance: FERRITIN
  26. LOVENOX [Concomitant]
     Active Substance: ENOXAPARIN SODIUM
  27. HYDROCHLOROTHIAZIDE. [Concomitant]
     Active Substance: HYDROCHLOROTHIAZIDE
     Indication: BLOOD PRESSURE MEASUREMENT
     Dates: start: 2010, end: 2014
  28. CRESTOR [Concomitant]
     Active Substance: ROSUVASTATIN CALCIUM
     Indication: CARDIAC DISORDER
     Dates: start: 20080303
  29. DILAUDID [Concomitant]
     Active Substance: HYDROMORPHONE HYDROCHLORIDE
  30. MELOXICAM. [Concomitant]
     Active Substance: MELOXICAM
  31. COMBIVENT RESPIMAT [Concomitant]
     Active Substance: ALBUTEROL SULFATE\IPRATROPIUM BROMIDE
  32. FLUTICASONE FUROATE [Concomitant]
     Active Substance: FLUTICASONE FUROATE
  33. DIFLUCAN [Concomitant]
     Active Substance: FLUCONAZOLE
  34. FISH OIL [Concomitant]
     Active Substance: FISH OIL
  35. IODINE. [Concomitant]
     Active Substance: IODINE
  36. IRON [Concomitant]
     Active Substance: IRON
  37. MUCINEX [Concomitant]
     Active Substance: GUAIFENESIN
  38. PREDNISONE. [Concomitant]
     Active Substance: PREDNISONE
  39. METHYLPREDNISOLONE. [Concomitant]
     Active Substance: METHYLPREDNISOLONE
  40. PRILOSEC OTC [Suspect]
     Active Substance: OMEPRAZOLE MAGNESIUM
     Indication: GASTROOESOPHAGEAL REFLUX DISEASE
     Route: 048
     Dates: start: 2004
  41. PREVACID 24 HR [Suspect]
     Active Substance: LANSOPRAZOLE
     Indication: GASTROOESOPHAGEAL REFLUX DISEASE
     Route: 065
     Dates: start: 200401, end: 201501
  42. PROTONIX [Suspect]
     Active Substance: PANTOPRAZOLE SODIUM
     Indication: GASTROOESOPHAGEAL REFLUX DISEASE
     Route: 065
     Dates: start: 200401, end: 201501
  43. LISINOPRIL. [Concomitant]
     Active Substance: LISINOPRIL
     Indication: BLOOD PRESSURE MEASUREMENT
     Dates: start: 2009, end: 2014
  44. PENICILLIN [Concomitant]
     Active Substance: PENICILLIN
     Indication: INFECTION
     Dates: start: 20150124
  45. AMOXICILLIN. [Concomitant]
     Active Substance: AMOXICILLIN
     Indication: INFECTION
     Dates: start: 2010, end: 2013
  46. LANTUS [Concomitant]
     Active Substance: INSULIN GLARGINE
  47. SULFADIAZINE. [Concomitant]
     Active Substance: SULFADIAZINE
  48. SODIUM CHLORIDE. [Concomitant]
     Active Substance: SODIUM CHLORIDE
  49. ACETAMINOPHEN. [Concomitant]
     Active Substance: ACETAMINOPHEN
  50. ONDANSETRON [Concomitant]
     Active Substance: ONDANSETRON
  51. PRILOSEC [Suspect]
     Active Substance: OMEPRAZOLE MAGNESIUM
     Indication: GASTROOESOPHAGEAL REFLUX DISEASE
     Route: 048
     Dates: start: 200401, end: 201501
  52. PRILOSEC [Suspect]
     Active Substance: OMEPRAZOLE MAGNESIUM
     Indication: GASTROOESOPHAGEAL REFLUX DISEASE
     Dosage: GENERIC
     Route: 065
     Dates: start: 20150929
  53. SERTRALINE [Concomitant]
     Active Substance: SERTRALINE HYDROCHLORIDE
  54. ALBUTEROL SULFATE. [Concomitant]
     Active Substance: ALBUTEROL SULFATE
  55. FLUTICASONE PROPIONATE. [Concomitant]
     Active Substance: FLUTICASONE PROPIONATE
  56. ETODOLAC. [Concomitant]
     Active Substance: ETODOLAC
  57. AUGMENTIN [Concomitant]
     Active Substance: AMOXICILLIN\CLAVULANATE POTASSIUM
  58. PAROXETINE. [Concomitant]
     Active Substance: PAROXETINE
  59. MULTIVITAMINS [Concomitant]
     Active Substance: VITAMINS
  60. DOCUSATE [Concomitant]
     Active Substance: DOCUSATE
  61. DEXTROMETHORPHAN-GUAIFENESIN [Concomitant]
     Active Substance: DEXTROMETHORPHAN\GUAIFENESIN
  62. PRILOSEC OTC [Suspect]
     Active Substance: OMEPRAZOLE MAGNESIUM
     Indication: GASTROOESOPHAGEAL REFLUX DISEASE
     Route: 048
     Dates: start: 200401, end: 201501
  63. PREVACID [Suspect]
     Active Substance: LANSOPRAZOLE
     Indication: GASTROOESOPHAGEAL REFLUX DISEASE
     Route: 065
     Dates: start: 200401, end: 201501
  64. SIMVASTATIN. [Concomitant]
     Active Substance: SIMVASTATIN
     Indication: CARDIAC DISORDER
     Dates: start: 2009, end: 2015
  65. TRAMADOL. [Concomitant]
     Active Substance: TRAMADOL
     Indication: PAIN
     Dates: start: 2007, end: 2014
  66. TAGAMET HB [Concomitant]
     Active Substance: CIMETIDINE
  67. TUMS [Concomitant]
     Active Substance: CALCIUM CARBONATE
     Dates: start: 1952
  68. ALKA-SELTZER [Concomitant]
     Active Substance: ANHYDROUS CITRIC ACID\ASPIRIN\SODIUM BICARBONATE
     Dates: start: 1952
  69. NITROGLYCERIN. [Concomitant]
     Active Substance: NITROGLYCERIN
  70. CALCIUM [Concomitant]
     Active Substance: CALCIUM
  71. MINOCYCLINE [Concomitant]
     Active Substance: MINOCYCLINE HYDROCHLORIDE
     Indication: INFECTION
     Dates: start: 20141017, end: 20141123
  72. MILK OF MAGNESIA [Concomitant]
     Active Substance: MAGNESIUM HYDROXIDE
     Dates: start: 1952
  73. MAALOX ANTACID [Concomitant]
     Active Substance: ALUMINUM HYDROXIDE\DIMETHICONE\MAGNESIUM HYDROXIDE
     Dates: start: 1952
  74. HYDRALAZINE [Concomitant]
     Active Substance: HYDRALAZINE HYDROCHLORIDE
  75. LOSARTAN POTASSIUM. [Concomitant]
     Active Substance: LOSARTAN POTASSIUM
  76. VITAMIN B12 [Concomitant]
     Active Substance: CYANOCOBALAMIN
  77. CLONIDINE HCL [Concomitant]
     Active Substance: CLONIDINE HYDROCHLORIDE
  78. ENOXAPARIN [Concomitant]
     Active Substance: ENOXAPARIN
  79. CALCIUM-VITAMIN D3 [Concomitant]
  80. GLUCOCORTICOID [Concomitant]
     Active Substance: UNSPECIFIED INGREDIENT
  81. DIPHENHYDRAMINE. [Concomitant]
     Active Substance: DIPHENHYDRAMINE

REACTIONS (5)
  - Renal failure [Unknown]
  - Chronic kidney disease [Not Recovered/Not Resolved]
  - Acute kidney injury [Unknown]
  - Depression [Not Recovered/Not Resolved]
  - Renal injury [Unknown]

NARRATIVE: CASE EVENT DATE: 20140501
